FAERS Safety Report 9521770 (Version 1)
Quarter: 2013Q3

REPORT INFORMATION
  Report Type: Spontaneous
  Country: FR (occurrence: FR)
  Receive Date: 20130913
  Receipt Date: 20130913
  Transmission Date: 20140515
  Serious: Yes (Death)
  Sender: FDA-Public Use
  Company Number: PHHY2013FR099991

PATIENT
  Age: 51 Year
  Sex: Female

DRUGS (2)
  1. SANDIMMUN [Suspect]
     Route: 042
     Dates: start: 20120507, end: 20120605
  2. ENDOXAN [Suspect]
     Dates: start: 20120507, end: 20120508

REACTIONS (4)
  - Myocarditis [Fatal]
  - Ejection fraction decreased [Fatal]
  - Renal failure [Fatal]
  - Pulmonary oedema [Fatal]
